FAERS Safety Report 5078228-X (Version None)
Quarter: 2006Q3

REPORT INFORMATION
  Report Type: 
  Country: None (occurrence: None)
  Receive Date: 20060811
  Receipt Date: 20060803
  Transmission Date: 20061208
  Serious: Yes (Hospitalization)
  Sender: FDA-Public Use
  Company Number: AT-JNJFOC-20060604665

PATIENT
  Sex: Male
  Weight: 77 kg

DRUGS (5)
  1. REMICADE [Suspect]
     Indication: PSORIASIS
     Route: 042
  2. XEFO [Concomitant]
     Route: 065
  3. XEFO [Concomitant]
     Route: 065
  4. LORNOXICAM [Concomitant]
     Route: 065
     Dates: start: 20060408, end: 20060523
  5. LORNOXICAM [Concomitant]
     Route: 065
     Dates: start: 20060408, end: 20060523

REACTIONS (1)
  - HEPATIC NEOPLASM MALIGNANT [None]
